FAERS Safety Report 18841296 (Version 2)
Quarter: 2021Q1

REPORT INFORMATION
  Report Type: Spontaneous
  Country: US (occurrence: US)
  Receive Date: 20210204
  Receipt Date: 20210326
  Transmission Date: 20210419
  Serious: Yes (Other)
  Sender: FDA-Public Use
  Company Number: US-ROCHE-2748913

PATIENT
  Sex: Female

DRUGS (2)
  1. XELODA [Suspect]
     Active Substance: CAPECITABINE
     Indication: PRODUCT USED FOR UNKNOWN INDICATION
     Route: 065
  2. TUKYSA [Suspect]
     Active Substance: TUCATINIB
     Indication: PRODUCT USED FOR UNKNOWN INDICATION
     Route: 065

REACTIONS (7)
  - Eye disorder [Recovering/Resolving]
  - COVID-19 [Unknown]
  - Constipation [Unknown]
  - Age-related macular degeneration [Unknown]
  - Visual impairment [Recovering/Resolving]
  - Photopsia [Unknown]
  - Neuropathy peripheral [Unknown]
